FAERS Safety Report 6588221-3 (Version None)
Quarter: 2010Q1

REPORT INFORMATION
  Report Type: 
  Country: None (occurrence: None)
  Receive Date: 20100217
  Receipt Date: 20100217
  Transmission Date: 20100710
  Serious: No
  Sender: FDA-Public Use
  Company Number: None

PATIENT
  Age: 85 Year
  Sex: Female
  Weight: 81.8 kg

DRUGS (4)
  1. ST. JOSEPH SAFETY COATED ASPIRIN [Suspect]
     Indication: CEREBROVASCULAR ACCIDENT PROPHYLAXIS
     Dosage: 1 PILL 1 X PER DAY ORAL 047
     Route: 048
     Dates: start: 20100117
  2. ST. JOSEPH SAFETY COATED ASPIRIN [Suspect]
     Indication: ISCHAEMIC HEART DISEASE PROPHYLAXIS
     Dosage: 1 PILL 1 X PER DAY ORAL 047
     Route: 048
     Dates: start: 20100117
  3. ST. JOSEPH SAFETY COATED ASPIRIN [Suspect]
     Indication: CEREBROVASCULAR ACCIDENT PROPHYLAXIS
     Dosage: 1 PILL 1 X PER DAY ORAL 047
     Route: 048
     Dates: start: 20100118
  4. ST. JOSEPH SAFETY COATED ASPIRIN [Suspect]
     Indication: ISCHAEMIC HEART DISEASE PROPHYLAXIS
     Dosage: 1 PILL 1 X PER DAY ORAL 047
     Route: 048
     Dates: start: 20100118

REACTIONS (4)
  - DIZZINESS [None]
  - LETHARGY [None]
  - NAUSEA [None]
  - PRODUCT QUALITY ISSUE [None]
